FAERS Safety Report 5331508-2 (Version None)
Quarter: 2007Q2

REPORT INFORMATION
  Report Type: 
  Country: None (occurrence: None)
  Receive Date: 20070522
  Receipt Date: 20070515
  Transmission Date: 20071010
  Serious: Yes (Hospitalization, Other)
  Sender: FDA-Public Use
  Company Number: US-PFIZER INC-2006071742

PATIENT
  Sex: Male

DRUGS (1)
  1. BEXTRA [Suspect]
     Indication: PAIN
     Route: 048
     Dates: start: 20031101, end: 20041101

REACTIONS (5)
  - ANGINA PECTORIS [None]
  - ANXIETY [None]
  - AORTIC INJURY [None]
  - ENDOCARDITIS [None]
  - MYOCARDIAL INFARCTION [None]
